FAERS Safety Report 21803221 (Version 1)
Quarter: 2023Q1

REPORT INFORMATION
  Report Type: Spontaneous
  Country: DK (occurrence: DK)
  Receive Date: 20230101
  Receipt Date: 20230101
  Transmission Date: 20230417
  Serious: Yes (Life-Threatening, Hospitalization)
  Sender: FDA-Public Use
  Company Number: None

PATIENT
  Age: 37 Year
  Sex: Female

DRUGS (1)
  1. AIMOVIG [Suspect]
     Active Substance: ERENUMAB-AOOE
     Indication: Migraine
     Dosage: 140 MG, Q4W (STRENGTH: 140 MG)
     Route: 058
     Dates: end: 202212

REACTIONS (2)
  - Malaise [Unknown]
  - Aortic dissection [Unknown]

NARRATIVE: CASE EVENT DATE: 20221205
